FAERS Safety Report 20087950 (Version 2)
Quarter: 2021Q4

REPORT INFORMATION
  Report Type: Spontaneous
  Country: US (occurrence: US)
  Receive Date: 20211118
  Receipt Date: 20211230
  Transmission Date: 20220303
  Serious: No
  Sender: FDA-Public Use
  Company Number: US-PFIZER INC-202101528618

PATIENT
  Age: 79 Year
  Sex: Female
  Weight: 57.61 kg

DRUGS (2)
  1. PREMARIN [Suspect]
     Active Substance: ESTROGENS, CONJUGATED
     Indication: Hysterectomy
     Dosage: 1.25 MG, DAILY (BUT SHE TAKES DAYS 1-26)
     Route: 048
  2. ORTHO MICRONOR [Concomitant]
     Active Substance: NORETHINDRONE

REACTIONS (4)
  - Upper respiratory tract infection [Recovering/Resolving]
  - Cough [Unknown]
  - Dizziness [Unknown]
  - Anxiety [Unknown]
